FAERS Safety Report 21435163 (Version 9)
Quarter: 2025Q1

REPORT INFORMATION
  Report Type: Report from Study
  Country: DE (occurrence: DE)
  Receive Date: 20221010
  Receipt Date: 20250117
  Transmission Date: 20250409
  Serious: No
  Sender: ROCHE
  Company Number: DE-ROCHE-2400697

PATIENT
  Age: 62 Year
  Sex: Female

DRUGS (11)
  1. OCREVUS [Suspect]
     Active Substance: OCRELIZUMAB
     Indication: Secondary progressive multiple sclerosis
     Dosage: 600 MG 181 DAYS??600 MG 195 DAYS
     Route: 042
     Dates: start: 20181004
  2. OCREVUS [Suspect]
     Active Substance: OCRELIZUMAB
     Route: 042
     Dates: start: 20181018
  3. OCREVUS [Suspect]
     Active Substance: OCRELIZUMAB
     Route: 042
     Dates: start: 20190429
  4. OCREVUS [Suspect]
     Active Substance: OCRELIZUMAB
     Route: 042
     Dates: start: 20191120
  5. OCREVUS [Suspect]
     Active Substance: OCRELIZUMAB
     Route: 042
     Dates: start: 20210811
  6. OCREVUS [Suspect]
     Active Substance: OCRELIZUMAB
     Route: 042
  7. GABAPENTIN [Suspect]
     Active Substance: GABAPENTIN
     Indication: Product used for unknown indication
     Route: 065
  8. CARVEDILOL [Concomitant]
     Active Substance: CARVEDILOL
     Route: 048
  9. PROPIVERINE HYDROCHLORIDE [Concomitant]
     Active Substance: PROPIVERINE HYDROCHLORIDE
  10. CITALOPRAM [Concomitant]
     Active Substance: CITALOPRAM
  11. CORTISONE [Concomitant]
     Active Substance: CORTISONE

REACTIONS (23)
  - Off label use [Unknown]
  - Oropharyngeal pain [Recovered/Resolved]
  - Dysphonia [Recovered/Resolved]
  - Cognitive disorder [Recovered/Resolved]
  - Laryngeal injury [Unknown]
  - Headache [Recovered/Resolved]
  - Hypotonia [Recovered/Resolved]
  - Muscle spasticity [Recovered/Resolved]
  - Muscular weakness [Recovered/Resolved]
  - Balance disorder [Not Recovered/Not Resolved]
  - Dizziness [Recovered/Resolved]
  - Vertigo [Recovered/Resolved]
  - Asthenia [Recovered/Resolved]
  - Malaise [Recovered/Resolved]
  - COVID-19 [Recovered/Resolved]
  - Periodontal disease [Recovered/Resolved]
  - Toothache [Recovered/Resolved]
  - Nausea [Recovered/Resolved]
  - Vomiting [Recovered/Resolved]
  - Back pain [Not Recovered/Not Resolved]
  - Erythema [Recovered/Resolved]
  - Feeling hot [Recovered/Resolved]
  - Fall [Recovered/Resolved]

NARRATIVE: CASE EVENT DATE: 20181004
